FAERS Safety Report 24783891 (Version 1)
Quarter: 2024Q4

REPORT INFORMATION
  Report Type: Report from Study
  Country: BR (occurrence: BR)
  Receive Date: 20241227
  Receipt Date: 20241227
  Transmission Date: 20250115
  Serious: Yes (Other)
  Sender: TEVA
  Company Number: BR-TEVA-VS-3219560

PATIENT
  Age: 30 Year
  Sex: Female

DRUGS (4)
  1. COPAXONE [Suspect]
     Active Substance: GLATIRAMER ACETATE
     Indication: Relapsing-remitting multiple sclerosis
     Dosage: TIME INTERVAL: 0.33333333 WEEKS
     Route: 065
     Dates: start: 202009
  2. DEPAKENE [Concomitant]
     Active Substance: VALPROIC ACID
     Indication: Product used for unknown indication
  3. QUET XR [Concomitant]
     Indication: Product used for unknown indication
  4. LITHIUM CARBONATE [Concomitant]
     Active Substance: LITHIUM CARBONATE
     Indication: Product used for unknown indication

REACTIONS (19)
  - Loss of consciousness [Recovered/Resolved]
  - Tachycardia [Recovering/Resolving]
  - Injection site pain [Not Recovered/Not Resolved]
  - Diarrhoea [Recovering/Resolving]
  - Dyspnoea [Recovering/Resolving]
  - Syncope [Unknown]
  - Injection site mass [Not Recovered/Not Resolved]
  - Erythema [Recovered/Resolved]
  - Tremor [Recovered/Resolved]
  - Vomiting [Recovering/Resolving]
  - Gait disturbance [Not Recovered/Not Resolved]
  - Facial pain [Recovering/Resolving]
  - Blindness [Recovering/Resolving]
  - Injection site discolouration [Not Recovered/Not Resolved]
  - Nodule [Recovered/Resolved]
  - Injection site pain [Not Recovered/Not Resolved]
  - Asthenia [Recovered/Resolved]
  - Arrhythmia [Unknown]
  - Drainage [Recovered/Resolved]

NARRATIVE: CASE EVENT DATE: 20240101
